FAERS Safety Report 17774170 (Version 1)
Quarter: 2020Q2

REPORT INFORMATION
  Report Type: Spontaneous
  Country: ES (occurrence: ES)
  Receive Date: 20200513
  Receipt Date: 20200513
  Transmission Date: 20200714
  Serious: Yes (Other)
  Sender: FDA-Public Use
  Company Number: ES-ACCORD-181446

PATIENT
  Age: 40 Year
  Sex: Male
  Weight: 72 kg

DRUGS (2)
  1. KETAZOLAM ADAMED [Interacting]
     Active Substance: KETAZOLAM
     Indication: ANXIETY
     Dosage: STRENGTH : 30 MG
     Route: 048
     Dates: start: 20200315
  2. ESCITALOPRAM [Suspect]
     Active Substance: ESCITALOPRAM OXALATE
     Indication: DEPRESSION
     Route: 048
     Dates: start: 20200312

REACTIONS (3)
  - Ejaculation delayed [Unknown]
  - Erectile dysfunction [Unknown]
  - Drug interaction [Unknown]

NARRATIVE: CASE EVENT DATE: 20200315
